FAERS Safety Report 18701075 (Version 2)
Quarter: 2021Q3

REPORT INFORMATION
  Report Type: Spontaneous
  Country: US (occurrence: US)
  Receive Date: 20210105
  Receipt Date: 20210831
  Transmission Date: 20211014
  Serious: No
  Sender: FDA-Public Use
  Company Number: US-TARO-2020TAR01329

PATIENT
  Sex: Female

DRUGS (3)
  1. CLOBETASOL [Suspect]
     Active Substance: CLOBETASOL
     Indication: PRURITUS
     Dosage: UNK
     Route: 061
  2. COUMADIN [Concomitant]
     Active Substance: WARFARIN SODIUM
     Indication: CARDIAC DISORDER
     Dosage: UNK
     Route: 065
  3. HYDROCORTISONE BUTYRATE OINTMENT 0.1% [Suspect]
     Active Substance: HYDROCORTISONE BUTYRATE
     Indication: PRURITUS
     Dosage: UNK
     Route: 061

REACTIONS (1)
  - Therapeutic product effect incomplete [Unknown]
